FAERS Safety Report 9937920 (Version 3)
Quarter: 2014Q1

REPORT INFORMATION
  Report Type: Spontaneous
  Country: IT (occurrence: IT)
  Receive Date: 20140303
  Receipt Date: 20140328
  Transmission Date: 20141002
  Serious: Yes (Hospitalization)
  Sender: FDA-Public Use
  Company Number: IT-AMGEN-ITASP2014014480

PATIENT
  Age: 58 Year
  Sex: Male

DRUGS (7)
  1. ENBREL [Suspect]
     Indication: PRODUCT USED FOR UNKNOWN INDICATION
     Dosage: 50 MG, WEEKLY
     Route: 058
     Dates: start: 20131006, end: 20131114
  2. PRISMA                             /00955201/ [Concomitant]
     Dosage: UNK
  3. SALAZOPYRIN [Concomitant]
     Dosage: UNK
  4. ACETAMOL                           /00020001/ [Concomitant]
     Dosage: UNK
  5. DIBASE [Concomitant]
     Dosage: UNK
  6. TIKLID [Concomitant]
     Dosage: UNK
  7. CIPRALEX                           /01588501/ [Concomitant]
     Dosage: UNK

REACTIONS (1)
  - Tuberculosis [Unknown]
